FAERS Safety Report 7228136-0 (Version None)
Quarter: 2011Q1

REPORT INFORMATION
  Report Type: 
  Country: None (occurrence: None)
  Receive Date: 20110114
  Receipt Date: 20110103
  Transmission Date: 20110831
  Serious: No
  Sender: FDA-Public Use
  Company Number: US-B.I. PHARMACEUTICALS,INC./RIDGEFIELD-2011-BP-00488BP

PATIENT
  Age: 67 Year
  Sex: Female

DRUGS (11)
  1. SOTALOL [Concomitant]
     Indication: HYPERTENSION
     Dosage: 160 MG
     Route: 048
  2. GLIPIZIDE [Concomitant]
     Indication: DIABETES MELLITUS
     Dosage: 10 MG
     Route: 048
  3. LISINOPRIL [Concomitant]
     Indication: HYPERTENSION
     Dosage: 20/25
     Route: 048
  4. CRESTOR [Concomitant]
     Indication: BLOOD CHOLESTEROL INCREASED
     Dosage: 20 MG
     Route: 048
  5. D3 [Concomitant]
     Indication: SUPPLEMENTATION THERAPY
     Dosage: 1000 MG
     Route: 048
  6. METFORMIN HCL [Concomitant]
     Indication: DIABETES MELLITUS
     Dosage: 2000 MG
     Route: 048
  7. POTASSIUM CHLORIDE [Concomitant]
     Dosage: 20 MEQ
     Route: 048
  8. FISH OIL [Concomitant]
     Indication: SUPPLEMENTATION THERAPY
     Dosage: 2000 MG
     Route: 048
  9. PRADAXA [Suspect]
     Indication: ATRIAL FIBRILLATION
     Dosage: 300 MG
     Route: 048
     Dates: start: 20101227
  10. DIGOXIN [Concomitant]
     Indication: HYPERTENSION
     Dosage: 0.125 MG
     Route: 048
  11. ASPIRIN [Concomitant]
     Dosage: 325 MG
     Route: 048

REACTIONS (2)
  - HYPOAESTHESIA [None]
  - DIZZINESS [None]
